FAERS Safety Report 4724999-9 (Version None)
Quarter: 2005Q3

REPORT INFORMATION
  Report Type: 
  Country: None (occurrence: None)
  Receive Date: 20050726
  Receipt Date: 20050624
  Transmission Date: 20060218
  Serious: Yes (Hospitalization)
  Sender: FDA-Public Use
  Company Number: GB-BRISTOL-MYERS SQUIBB COMPANY-13015755

PATIENT
  Age: 67 Year
  Sex: Female

DRUGS (7)
  1. DOXORUBICIN HCL [Suspect]
     Indication: ENDOMETRIAL CANCER
     Dates: start: 20050606, end: 20050606
  2. PACLITAXEL [Suspect]
     Indication: ENDOMETRIAL CANCER
     Dates: start: 20050606, end: 20050606
  3. CISPLATIN [Suspect]
     Indication: ENDOMETRIAL CANCER
     Dates: start: 20050606, end: 20050606
  4. DIGOXIN [Concomitant]
  5. BENDROFLUAZIDE [Concomitant]
  6. DEXAMETHASONE [Concomitant]
     Dates: start: 20040401
  7. LANSOPRAZOLE [Concomitant]

REACTIONS (3)
  - ASTHENIA [None]
  - BACK PAIN [None]
  - DIZZINESS [None]
